FAERS Safety Report 6720397-7 (Version None)
Quarter: 2010Q2

REPORT INFORMATION
  Report Type: 
  Country: None (occurrence: None)
  Receive Date: 20100511
  Receipt Date: 20100430
  Transmission Date: 20101027
  Serious: Yes (Other)
  Sender: FDA-Public Use
  Company Number: US-PFIZER INC-2010045424

PATIENT
  Sex: Female
  Weight: 90.703 kg

DRUGS (9)
  1. CHANTIX [Suspect]
     Indication: SMOKING CESSATION THERAPY
     Dosage: 0.5 MG, 1X/DAY
     Route: 048
     Dates: start: 20100101
  2. GEODON [Concomitant]
     Dosage: UNK
  3. AMBIEN [Concomitant]
     Dosage: UNK
  4. LAMICTAL [Concomitant]
     Dosage: UNK
  5. KLONOPIN [Concomitant]
     Dosage: UNK
  6. CLONAZEPAM [Concomitant]
     Dosage: UNK
  7. FLEXERIL [Concomitant]
     Dosage: UNK
  8. TEMAZEPAM [Concomitant]
     Dosage: UNK
  9. TOPROL-XL [Concomitant]
     Dosage: UNK

REACTIONS (2)
  - HALLUCINATION, AUDITORY [None]
  - NERVOUSNESS [None]
